FAERS Safety Report 10181811 (Version 2)
Quarter: 2014Q2

REPORT INFORMATION
  Report Type: Spontaneous
  Country: US (occurrence: US)
  Receive Date: 20140519
  Receipt Date: 20140604
  Transmission Date: 20141212
  Serious: No
  Sender: FDA-Public Use
  Company Number: US-TEVA-482851USA

PATIENT
  Age: 22 Year
  Sex: Female
  Weight: 72.64 kg

DRUGS (4)
  1. PLAN B ONE-STEP [Suspect]
     Indication: POST COITAL CONTRACEPTION
     Dosage: 1.5 MILLIGRAM DAILY;
     Route: 048
     Dates: start: 20140505, end: 20140505
  2. MICROGESTIN [Concomitant]
     Indication: CONTRACEPTION
  3. ATENOLOL [Concomitant]
     Indication: HYPERTENSION
  4. LANSOPRAZOLE [Concomitant]
     Indication: GASTROOESOPHAGEAL REFLUX DISEASE

REACTIONS (2)
  - Fatigue [Recovered/Resolved]
  - Pelvic pain [Recovered/Resolved]
